FAERS Safety Report 18466193 (Version 19)
Quarter: 2024Q2

REPORT INFORMATION
  Report Type: Other
  Country: CA (occurrence: None)
  Receive Date: 20201104
  Receipt Date: 20240515
  Transmission Date: 20240717
  Serious: Yes (Hospitalization, Other)
  Sender: FDA-Public Use
  Company Number: CA-ROCHE-2557077

PATIENT
  Age: 25 Year
  Sex: Female
  Weight: 110.32 kg

DRUGS (10)
  1. OCREVUS [Suspect]
     Active Substance: OCRELIZUMAB
     Indication: Relapsing-remitting multiple sclerosis
     Dosage: 300 MG AT DAY 0 AND 14, THEN 600 MG EVERY 6 MONTH
     Route: 042
     Dates: start: 20200113
  2. OCREVUS [Suspect]
     Active Substance: OCRELIZUMAB
     Dosage: 300 MG AT DAY 0 AND 14, THEN 600 MG EVERY 6 MONTH; SUBSEQUENT INFUSION ON 15/JUL/2023
     Route: 042
     Dates: start: 20230202
  3. OCREVUS [Suspect]
     Active Substance: OCRELIZUMAB
     Route: 042
     Dates: start: 20240502
  4. SKYRIZI [Suspect]
     Active Substance: RISANKIZUMAB-RZAA
     Indication: Crohn^s disease
     Route: 065
     Dates: start: 20230928
  5. KESIMPTA [Concomitant]
     Active Substance: OFATUMUMAB
  6. COPAXONE [Concomitant]
     Active Substance: GLATIRAMER ACETATE
  7. PFIZER-BIONTECH COVID-19 VACCINE [Concomitant]
     Active Substance: TOZINAMERAN
     Dosage: FIRST DOSE
     Dates: start: 20210429
  8. PFIZER-BIONTECH COVID-19 VACCINE [Concomitant]
     Active Substance: TOZINAMERAN
     Dosage: SECOND DOSE
     Dates: start: 20210531
  9. ENTYVIO [Concomitant]
     Active Substance: VEDOLIZUMAB
  10. STELARA [Concomitant]
     Active Substance: USTEKINUMAB

REACTIONS (18)
  - Rectal abscess [Recovered/Resolved]
  - Crohn^s disease [Unknown]
  - Morning sickness [Not Recovered/Not Resolved]
  - Gestational hypertension [Recovered/Resolved]
  - Fungal infection [Recovered/Resolved]
  - Skin infection [Not Recovered/Not Resolved]
  - Gastrointestinal disorder [Not Recovered/Not Resolved]
  - Skin lesion [Unknown]
  - Maternal exposure before pregnancy [Unknown]
  - Skin ulcer [Not Recovered/Not Resolved]
  - Raynaud^s phenomenon [Unknown]
  - Infusion related reaction [Recovered/Resolved]
  - Infusion related reaction [Recovered/Resolved]
  - Vascular access site pain [Recovered/Resolved]
  - Maternal exposure during pregnancy [Unknown]
  - Skin wound [Unknown]
  - B-lymphocyte abnormalities [Unknown]
  - Infusion related reaction [Recovering/Resolving]

NARRATIVE: CASE EVENT DATE: 20200113
